FAERS Safety Report 14584350 (Version 1)
Quarter: 2018Q1

REPORT INFORMATION
  Report Type: Spontaneous
  Country: FR (occurrence: FR)
  Receive Date: 20180301
  Receipt Date: 20180301
  Transmission Date: 20180509
  Serious: Yes (Other)
  Sender: FDA-Public Use
  Company Number: FR-AUROBINDO-AUR-APL-2017-48109

PATIENT
  Age: 83 Year
  Sex: Female

DRUGS (49)
  1. ALLOPURINOL. [Suspect]
     Active Substance: ALLOPURINOL
     Dosage: DOSAGE FORM: UNSPECIFIED ()
     Route: 048
  2. LOXEN                              /00639802/ [Suspect]
     Active Substance: NICARDIPINE HYDROCHLORIDE
     Indication: HYPERTENSION
     Dosage: DOSAGE FORM: UNSPECIFIED ()
     Route: 048
     Dates: end: 20171016
  3. KARDEGIC [Suspect]
     Active Substance: ASPIRIN DL-LYSINE
     Dosage: DOSAGE FORM: UNSPECIFIED ()
  4. TRAMADOL HYDROCHLORIDE. [Suspect]
     Active Substance: TRAMADOL HYDROCHLORIDE
     Indication: PAIN
     Dosage: DOSAGE FORM: UNSPECIFIED ()
     Route: 048
  5. MIRTAZAPINE. [Suspect]
     Active Substance: MIRTAZAPINE
     Dosage: DOSAGE FORM: UNSPECIFIED ()
     Route: 048
  6. MOVICOL [Suspect]
     Active Substance: POLYETHYLENE GLYCOL 3350\POTASSIUM CHLORIDE\SODIUM BICARBONATE\SODIUM CHLORIDE
     Dosage: DOSAGE FORM: UNSPECIFIED ()
  7. MOVICOL [Suspect]
     Active Substance: POLYETHYLENE GLYCOL 3350\POTASSIUM CHLORIDE\SODIUM BICARBONATE\SODIUM CHLORIDE
     Dosage: DOSAGE FORM: UNSPECIFIED ()
  8. BETNEVAL [Suspect]
     Active Substance: BETAMETHASONE VALERATE
     Dosage: DOSAGE FORM: UNSPECIFIED ()
  9. VERSATIS [Suspect]
     Active Substance: LIDOCAINE
     Indication: PAIN
     Dosage: UNK
     Route: 062
  10. KARDEGIC [Suspect]
     Active Substance: ASPIRIN DL-LYSINE
     Dosage: DOSAGE FORM: UNSPECIFIED ()
  11. MIRTAZAPINE. [Suspect]
     Active Substance: MIRTAZAPINE
     Indication: DEPRESSION
     Dosage: UNK
     Route: 048
  12. NEBIVOLOL. [Suspect]
     Active Substance: NEBIVOLOL
     Dosage: DOSAGE FORM: UNSPECIFIED ()
     Route: 048
  13. BETNEVAL [Suspect]
     Active Substance: BETAMETHASONE VALERATE
     Indication: PRODUCT USED FOR UNKNOWN INDICATION
     Dosage: UNK
     Route: 003
  14. AMLODIPINE [Concomitant]
     Active Substance: AMLODIPINE BESYLATE
     Indication: HYPERTENSION
     Dosage: UNK
     Route: 048
     Dates: start: 20171017
  15. MIRTAZAPINE. [Suspect]
     Active Substance: MIRTAZAPINE
     Dosage: DOSAGE FORM: UNSPECIFIED ()
     Route: 048
  16. MIRTAZAPINE. [Suspect]
     Active Substance: MIRTAZAPINE
     Dosage: DOSAGE FORM: UNSPECIFIED ()
     Route: 048
  17. FUROSEMIDE. [Suspect]
     Active Substance: FUROSEMIDE
     Dosage: DOSAGE FORM: UNSPECIFIED ()
     Route: 048
  18. FUROSEMIDE. [Suspect]
     Active Substance: FUROSEMIDE
     Dosage: DOSAGE FORM: UNSPECIFIED ()
     Route: 048
  19. DIFFU K [Suspect]
     Active Substance: POTASSIUM CHLORIDE
     Indication: HYPOKALAEMIA
     Dosage: ()
     Route: 048
  20. CALCIPARINE [Suspect]
     Active Substance: HEPARIN CALCIUM
     Dosage: DOSAGE FORM: UNSPECIFIED ()
  21. KARDEGIC [Suspect]
     Active Substance: ASPIRIN DL-LYSINE
     Indication: PRODUCT USED FOR UNKNOWN INDICATION
     Dosage: UNK
     Route: 048
  22. TRAMADOL. [Suspect]
     Active Substance: TRAMADOL
     Indication: PAIN
     Dosage: UNK
     Route: 048
  23. ALLOPURINOL. [Suspect]
     Active Substance: ALLOPURINOL
     Indication: GOUT
     Dosage: UNK
     Route: 048
  24. ALLOPURINOL. [Suspect]
     Active Substance: ALLOPURINOL
     Dosage: DOSAGE FORM: UNSPECIFIED ()
     Route: 048
  25. PARACETAMOL [Suspect]
     Active Substance: ACETAMINOPHEN
     Indication: PAIN
     Dosage: UNK
     Route: 048
  26. PARACETAMOL [Suspect]
     Active Substance: ACETAMINOPHEN
     Dosage: DOSAGE FORM: UNSPECIFIED ()
     Route: 048
  27. ECONAZOLE [Suspect]
     Active Substance: ECONAZOLE
     Dosage: UNK
     Route: 003
  28. MOVICOL [Suspect]
     Active Substance: POLYETHYLENE GLYCOL 3350\POTASSIUM CHLORIDE\SODIUM BICARBONATE\SODIUM CHLORIDE
     Indication: CONSTIPATION
     Dosage: UNK
     Route: 048
  29. ALLOPURINOL. [Suspect]
     Active Substance: ALLOPURINOL
     Dosage: DOSAGE FORM: UNSPECIFIED ()
     Route: 048
  30. PARACETAMOL [Suspect]
     Active Substance: ACETAMINOPHEN
     Dosage: DOSAGE FORM: UNSPECIFIED ()
     Route: 048
  31. PARACETAMOL [Suspect]
     Active Substance: ACETAMINOPHEN
     Dosage: DOSAGE FORM: UNSPECIFIED ()
     Route: 048
  32. FUROSEMIDE. [Suspect]
     Active Substance: FUROSEMIDE
     Dosage: DOSAGE FORM: UNSPECIFIED ()
     Route: 048
  33. BETNEVAL [Suspect]
     Active Substance: BETAMETHASONE VALERATE
     Dosage: DOSAGE FORM: UNSPECIFIED ()
     Route: 003
  34. BETNEVAL [Suspect]
     Active Substance: BETAMETHASONE VALERATE
     Dosage: DOSAGE FORM: UNSPECIFIED ()
  35. CALCIPARINE [Suspect]
     Active Substance: HEPARIN CALCIUM
     Indication: ANTICOAGULANT THERAPY
     Dosage: UNK
     Route: 058
  36. CALCIPARINE [Suspect]
     Active Substance: HEPARIN CALCIUM
     Dosage: DOSAGE FORM: UNSPECIFIED ()
  37. KARDEGIC [Suspect]
     Active Substance: ASPIRIN DL-LYSINE
     Dosage: DOSAGE FORM: UNSPECIFIED ()
     Route: 048
  38. NEBIVOLOL. [Suspect]
     Active Substance: NEBIVOLOL
     Dosage: DOSAGE FORM: UNSPECIFIED ()
     Route: 048
  39. ECONAZOLE [Suspect]
     Active Substance: ECONAZOLE
     Indication: PRODUCT USED FOR UNKNOWN INDICATION
     Dosage: UNK
     Route: 003
  40. ECONAZOLE [Suspect]
     Active Substance: ECONAZOLE
     Dosage: UNK
     Route: 003
  41. FUROSEMIDE. [Suspect]
     Active Substance: FUROSEMIDE
     Indication: PRODUCT USED FOR UNKNOWN INDICATION
     Dosage: UNK
     Route: 048
  42. MOVICOL [Suspect]
     Active Substance: POLYETHYLENE GLYCOL 3350\POTASSIUM CHLORIDE\SODIUM BICARBONATE\SODIUM CHLORIDE
     Dosage: DOSAGE FORM: UNSPECIFIED ()
  43. CATAPRESSAN                        /00171101/ [Suspect]
     Active Substance: CLONIDINE
     Indication: HYPERTENSION
     Dosage: UNK
     Route: 048
     Dates: end: 20171015
  44. AMLODIPINE [Suspect]
     Active Substance: AMLODIPINE BESYLATE
     Indication: HYPERTENSION
     Dosage: DOSAGE FORM: UNSPECIFIED ()
     Route: 048
     Dates: start: 20171017
  45. NEBIVOLOL. [Suspect]
     Active Substance: NEBIVOLOL
     Indication: HYPERTENSION
     Dosage: UNK
     Route: 048
  46. NEBIVOLOL. [Suspect]
     Active Substance: NEBIVOLOL
     Dosage: DOSAGE FORM: UNSPECIFIED ()
     Route: 048
  47. ECONAZOLE [Suspect]
     Active Substance: ECONAZOLE
     Dosage: UNK
     Route: 003
  48. CALCIPARINE [Suspect]
     Active Substance: HEPARIN CALCIUM
     Dosage: DOSAGE FORM: UNSPECIFIED ()
  49. CLONIDINE. [Suspect]
     Active Substance: CLONIDINE
     Indication: HYPERTENSION
     Dosage: DOSAGE FORM: UNSPECIFIED ()
     Route: 048
     Dates: end: 20171015

REACTIONS (1)
  - Acute motor-sensory axonal neuropathy [Not Recovered/Not Resolved]

NARRATIVE: CASE EVENT DATE: 201511
